FAERS Safety Report 6131472-2 (Version None)
Quarter: 2009Q1

REPORT INFORMATION
  Report Type: 
  Country: None (occurrence: None)
  Receive Date: 20090325
  Receipt Date: 20080911
  Transmission Date: 20090719
  Serious: No
  Sender: FDA-Public Use
  Company Number: US-BRISTOL-MYERS SQUIBB COMPANY-14291561

PATIENT
  Age: 42 Year
  Sex: Female
  Weight: 107 kg

DRUGS (11)
  1. ERBITUX [Suspect]
     Indication: COLON CANCER
     Dosage: 05AUG08,500MG,IV.
     Route: 042
     Dates: start: 20080729
  2. CAMPTOSAR [Concomitant]
     Indication: COLON CANCER
     Dates: start: 20080708
  3. AVASTIN [Concomitant]
     Indication: COLON CANCER
     Route: 042
     Dates: start: 20080729
  4. COUMADIN [Concomitant]
  5. EFFEXOR [Concomitant]
  6. MULTI-VITAMIN [Concomitant]
  7. VICODIN [Concomitant]
  8. ZYPREXA [Concomitant]
  9. ATIVAN [Concomitant]
  10. EMEND [Concomitant]
  11. ZOFRAN [Concomitant]

REACTIONS (2)
  - RASH [None]
  - TONGUE ULCERATION [None]
